FAERS Safety Report 24886562 (Version 2)
Quarter: 2025Q1

REPORT INFORMATION
  Report Type: Spontaneous
  Country: US (occurrence: US)
  Receive Date: 20250126
  Receipt Date: 20250129
  Transmission Date: 20250408
  Serious: No
  Sender: SANOFI AVENTIS
  Company Number: US-SA-2025SA023879

PATIENT
  Age: 41 Year

DRUGS (2)
  1. SOLIQUA 100/33 [Suspect]
     Active Substance: INSULIN GLARGINE\LIXISENATIDE
     Indication: Blood glucose
     Dosage: 32 IU, QD
  2. ADMELOG [Suspect]
     Active Substance: INSULIN LISPRO
     Indication: Blood glucose
     Dosage: 3 IU,TID
     Route: 065

REACTIONS (1)
  - Off label use [Unknown]
